FAERS Safety Report 6785272-0 (Version None)
Quarter: 2010Q2

REPORT INFORMATION
  Report Type: 
  Country: None (occurrence: None)
  Receive Date: 20100623
  Receipt Date: 20100527
  Transmission Date: 20101027
  Serious: Yes (Hospitalization)
  Sender: FDA-Public Use
  Company Number: US-ASTRAZENECA-2010SE26823

PATIENT
  Age: 451 Month
  Sex: Female

DRUGS (5)
  1. SEROQUEL [Suspect]
     Route: 048
     Dates: start: 20051214
  2. PROPRANOLOL [Concomitant]
     Dosage: 20-40 MG
     Dates: start: 20050318
  3. DIAZEPAM [Concomitant]
     Dates: start: 20060101
  4. KLONOPIN [Concomitant]
     Indication: ANXIETY
     Dates: start: 20060101
  5. LORAZEPAM [Concomitant]
     Indication: ANXIETY
     Dates: start: 20060101

REACTIONS (11)
  - BACK PAIN [None]
  - COMPLEX REGIONAL PAIN SYNDROME [None]
  - HYPERCHOLESTEROLAEMIA [None]
  - NEUROGENIC BLADDER [None]
  - OBESITY [None]
  - OSTEOPENIA [None]
  - RHEUMATOID ARTHRITIS [None]
  - SCHIZOPHRENIA, PARANOID TYPE [None]
  - SCIATICA [None]
  - THYROID DISORDER [None]
  - TYPE 2 DIABETES MELLITUS [None]
